FAERS Safety Report 10197373 (Version 1)
Quarter: 2014Q2

REPORT INFORMATION
  Report Type: Spontaneous
  Country: US (occurrence: None)
  Receive Date: 20140523
  Receipt Date: 20140523
  Transmission Date: 20141212
  Serious: No
  Sender: FDA-Public Use
  Company Number: None

PATIENT
  Age: 47 Year
  Sex: Male
  Weight: 52.62 kg

DRUGS (4)
  1. HUMIRA [Suspect]
     Indication: CROHN^S DISEASE
     Dosage: BY INJECTION
     Dates: start: 201311, end: 201312
  2. PREDINSONE [Concomitant]
  3. TIZANDINE 4MG [Concomitant]
  4. DICLOFENAC SODIUM 75MG [Concomitant]

REACTIONS (5)
  - Rash [None]
  - Blister [None]
  - Gait disturbance [None]
  - Peripheral swelling [None]
  - Pruritus [None]
